FAERS Safety Report 25343566 (Version 3)
Quarter: 2025Q2

REPORT INFORMATION
  Report Type: Report from Study
  Country: EG (occurrence: EG)
  Receive Date: 20250521
  Receipt Date: 20250611
  Transmission Date: 20250717
  Serious: No
  Sender: BIOGEN
  Company Number: EG-BIOGEN-2025BI01311477

PATIENT
  Sex: Female

DRUGS (5)
  1. TYSABRI [Suspect]
     Active Substance: NATALIZUMAB
     Indication: Multiple sclerosis
     Route: 050
     Dates: start: 202412
  2. MILGA ADVANCE [Concomitant]
     Indication: Supplementation therapy
     Route: 050
  3. PREGANACARE [Concomitant]
     Indication: Supplementation therapy
     Route: 050
  4. OMEGA-3 ACIDS [Concomitant]
     Active Substance: OMEGA-3 FATTY ACIDS
     Indication: Supplementation therapy
     Route: 050
  5. CALCIUM [Concomitant]
     Active Substance: CALCIUM
     Indication: Supplementation therapy
     Route: 050

REACTIONS (2)
  - Maternal exposure during pregnancy [Recovered/Resolved]
  - Premature baby [Recovered/Resolved]
